FAERS Safety Report 5047549-9 (Version None)
Quarter: 2006Q3

REPORT INFORMATION
  Report Type: 
  Country: None (occurrence: None)
  Receive Date: 20060703
  Receipt Date: 20060621
  Transmission Date: 20061208
  Serious: Yes (Hospitalization)
  Sender: FDA-Public Use
  Company Number: 13419510

PATIENT
  Sex: Female

DRUGS (3)
  1. SERZONE [Suspect]
     Indication: DEPRESSION
     Dosage: 200 MILLIGRAM, ORAL
     Route: 048
     Dates: start: 19970701
  2. SYNTHROID [Concomitant]
  3. ACETAMINOPHEN [Concomitant]

REACTIONS (2)
  - HEPATIC FAILURE [None]
  - LIVER TRANSPLANT [None]
